FAERS Safety Report 17367751 (Version 4)
Quarter: 2020Q2

REPORT INFORMATION
  Report Type: Spontaneous
  Country: US (occurrence: US)
  Receive Date: 20200204
  Receipt Date: 20200420
  Transmission Date: 20200713
  Serious: Yes (Hospitalization)
  Sender: FDA-Public Use
  Company Number: US-JNJFOC-20200146232

PATIENT
  Age: 82 Year
  Sex: Male

DRUGS (2)
  1. LEVAQUIN [Suspect]
     Active Substance: LEVOFLOXACIN
     Route: 048
  2. LEVAQUIN [Suspect]
     Active Substance: LEVOFLOXACIN
     Indication: URINARY TRACT INFECTION
     Route: 048
     Dates: start: 20181205, end: 20181210

REACTIONS (3)
  - Aortic aneurysm [Unknown]
  - Atrial fibrillation [Unknown]
  - Tendon rupture [Unknown]

NARRATIVE: CASE EVENT DATE: 20181210
